FAERS Safety Report 24050117 (Version 1)
Quarter: 2024Q3

REPORT INFORMATION
  Report Type: Spontaneous
  Country: US (occurrence: US)
  Receive Date: 20240704
  Receipt Date: 20240704
  Transmission Date: 20241016
  Serious: Yes (Other)
  Sender: BLUEPRINT MEDICINES
  Company Number: US-Blueprint Medicines Corporation-4048

PATIENT
  Sex: Male

DRUGS (1)
  1. AYVAKIT [Suspect]
     Active Substance: AVAPRITINIB
     Indication: Advanced systemic mastocytosis
     Route: 065
     Dates: start: 20240122

REACTIONS (5)
  - Peripheral nerve injury [Unknown]
  - Muscle atrophy [Unknown]
  - Tremor [Unknown]
  - Brain fog [Unknown]
  - Musculoskeletal disorder [Unknown]
